FAERS Safety Report 6826322-2 (Version None)
Quarter: 2010Q3

REPORT INFORMATION
  Report Type: 
  Country: None (occurrence: None)
  Receive Date: 20100709
  Receipt Date: 20100706
  Transmission Date: 20110219
  Serious: Yes (Other)
  Sender: FDA-Public Use
  Company Number: PHHY2010JP44022

PATIENT
  Age: 24 Year
  Sex: Female

DRUGS (1)
  1. ZADITEN [Suspect]
     Indication: HYPERSENSITIVITY
     Route: 048

REACTIONS (1)
  - SUPRAVENTRICULAR EXTRASYSTOLES [None]
